FAERS Safety Report 10782748 (Version 1)
Quarter: 2015Q1

REPORT INFORMATION
  Report Type: Spontaneous
  Country: ZA (occurrence: ZA)
  Receive Date: 20150210
  Receipt Date: 20150210
  Transmission Date: 20150721
  Serious: Yes (Hospitalization)
  Sender: FDA-Public Use
  Company Number: ZA-PFIZER INC-2015052738

PATIENT
  Age: 48 Year
  Sex: Male

DRUGS (12)
  1. LYRICA [Suspect]
     Active Substance: PREGABALIN
     Indication: NEUROPATHY PERIPHERAL
     Dosage: 150 MG, DAILY
     Route: 048
     Dates: start: 2009, end: 201412
  2. CELEBREX [Suspect]
     Active Substance: CELECOXIB
     Indication: PAIN
     Dosage: 100 MG, DAILY
     Route: 048
     Dates: start: 201412
  3. TOPZOLE [Concomitant]
     Indication: GASTRIC ULCER
     Dosage: 40 MG, DAILY
     Route: 048
     Dates: start: 201408
  4. URBANOL [Concomitant]
     Active Substance: CLOBAZAM
     Indication: STRESS
     Dosage: 50 MG, DAILY
     Route: 048
     Dates: start: 201412
  5. NORMISON [Concomitant]
     Active Substance: TEMAZEPAM
     Indication: INSOMNIA
     Dosage: 10 MG, DAILY
     Route: 048
     Dates: start: 201412
  6. DISPRIN [Concomitant]
     Active Substance: ASPIRIN
     Indication: ANTICOAGULANT THERAPY
     Dosage: UNK, DAILY
     Route: 048
     Dates: start: 201412
  7. ZARTAN [Concomitant]
     Indication: BLOOD PRESSURE ABNORMAL
     Dosage: 100 MG, DAILY
     Route: 048
     Dates: start: 2010
  8. NOVOMIX [Concomitant]
     Active Substance: INSULIN ASPART
     Indication: DIABETES MELLITUS
     Dosage: 30 MG, 3X/DAY
     Route: 058
     Dates: start: 2005
  9. GALVUS [Concomitant]
     Active Substance: VILDAGLIPTIN
     Indication: DIABETES MELLITUS
     Dosage: 50 MG, DAILY
     Route: 048
     Dates: start: 2010, end: 201412
  10. SERDEP [Concomitant]
     Indication: DEPRESSION
     Dosage: 50 MG, DAILY
     Route: 048
     Dates: start: 2005
  11. EPITEC [Concomitant]
     Indication: EPILEPSY
     Dosage: 100 AND 200, DAILY
     Route: 048
     Dates: start: 2005
  12. PURICOS [Concomitant]
     Active Substance: ALLOPURINOL
     Indication: GOUT
     Dosage: 100 MG, DAILY
     Route: 048
     Dates: start: 201412

REACTIONS (2)
  - Cardiac arrest [Unknown]
  - Coma [Recovering/Resolving]

NARRATIVE: CASE EVENT DATE: 201408
